FAERS Safety Report 7633740-1 (Version None)
Quarter: 2011Q3

REPORT INFORMATION
  Report Type: 
  Country: None (occurrence: None)
  Receive Date: 20110714
  Receipt Date: 20101019
  Transmission Date: 20111222
  Serious: Yes (Other)
  Sender: FDA-Public Use
  Company Number: 2010SP056164

PATIENT

DRUGS (1)
  1. INTEGRILIN [Suspect]
     Indication: PERCUTANEOUS CORONARY INTERVENTION
     Dates: start: 20101019, end: 20101019

REACTIONS (1)
  - PLATELET COUNT DECREASED [None]
